FAERS Safety Report 4546555-8 (Version None)
Quarter: 2005Q1

REPORT INFORMATION
  Report Type: 
  Country: None (occurrence: None)
  Receive Date: 20050103
  Receipt Date: 20041215
  Transmission Date: 20050727
  Serious: Yes (Hospitalization, Other)
  Sender: FDA-Public Use
  Company Number: GBS041216155

PATIENT
  Age: 13 Year
  Sex: Female
  Weight: 50 kg

DRUGS (5)
  1. YENTREVE (DULOXETINE HYDROCHLORIDE) [Suspect]
     Indication: STRESS INCONTINENCE
     Dosage: 20 MG
     Dates: start: 20041124, end: 20041203
  2. VERMOX [Concomitant]
  3. TEGRETOL (CARBAMAZEPINE RIVOPHARM) [Concomitant]
  4. MEFENAMIC ACID [Concomitant]
  5. AMOXICILLIN [Concomitant]

REACTIONS (2)
  - CONVULSION [None]
  - DRUG INTERACTION [None]
